FAERS Safety Report 8865360 (Version 1)
Quarter: 2012Q4

REPORT INFORMATION
  Report Type: 
  Country: US (occurrence: US)
  Receive Date: 20121024
  Receipt Date: 20121024
  Transmission Date: 20130627
  Serious: No
  Sender: FDA-Public Use
  Company Number: US-AMGEN-USASP2012002563

PATIENT
  Age: 56 Year
  Sex: Female

DRUGS (10)
  1. ENBREL [Suspect]
     Indication: PRODUCT USED FOR UNKNOWN INDICATION
     Dosage: 50 mg, qwk
     Route: 058
  2. LORTAB                             /00607101/ [Concomitant]
     Dosage: UNK mg, UNK
  3. VITAMIN C                          /00008001/ [Concomitant]
     Dosage: 500 mg, tid
  4. VITAMIN E                          /00110501/ [Concomitant]
     Dosage: 100 IU, UNK
  5. VITAMIN D3 [Concomitant]
     Dosage: 1000 IU, UNK
  6. VITAMIN A /00056001/ [Concomitant]
     Dosage: 10000 IU, UNK
  7. VITAMIN B-1 [Concomitant]
     Dosage: 250 mg, UNK
  8. FISH OIL [Concomitant]
     Dosage: UNK
  9. VITAMIN B-12 [Concomitant]
     Dosage: 500 mug, UNK
  10. CALCIUM [Concomitant]
     Dosage: 500 mg, UNK

REACTIONS (2)
  - Neck mass [Unknown]
  - Contusion [Unknown]
